FAERS Safety Report 10589586 (Version 2)
Quarter: 2015Q1

REPORT INFORMATION
  Report Type: Spontaneous
  Country: US (occurrence: US)
  Receive Date: 20141118
  Receipt Date: 20150105
  Transmission Date: 20150720
  Serious: No
  Sender: FDA-Public Use
  Company Number: US-009507513-1411USA004341

PATIENT
  Sex: Female
  Weight: 79.37 kg

DRUGS (1)
  1. NASONEX [Suspect]
     Active Substance: MOMETASONE FUROATE
     Dosage: ONE SPRAY EACH NOSTRIL, BID
     Route: 045
     Dates: start: 2003

REACTIONS (4)
  - Anxiety [Unknown]
  - Product quality issue [Unknown]
  - Drug dose omission [Unknown]
  - Expired product administered [Unknown]
